FAERS Safety Report 24048667 (Version 2)
Quarter: 2024Q4

REPORT INFORMATION
  Report Type: Report from Study
  Country: JP (occurrence: JP)
  Receive Date: 20240704
  Receipt Date: 20241224
  Transmission Date: 20250115
  Serious: Yes (Hospitalization)
  Sender: AMGEN
  Company Number: JP-KISSEI-TV20240498_P_1

PATIENT
  Age: 65 Year
  Sex: Male
  Weight: 62.7 kg

DRUGS (18)
  1. AVACOPAN [Suspect]
     Active Substance: AVACOPAN
     Indication: Microscopic polyangiitis
     Dosage: 60 MILLIGRAM, QD
     Route: 048
     Dates: start: 20230518
  2. PREDNISOLONE [Suspect]
     Active Substance: PREDNISOLONE
     Indication: Microscopic polyangiitis
     Dosage: 65 MILLIGRAM, QD (PERORAL MEDICINE)
     Route: 048
  3. PREDNISOLONE [Suspect]
     Active Substance: PREDNISOLONE
     Dosage: 45 MILLIGRAM, QD (PERORAL MEDICINE)
     Route: 048
     Dates: end: 20230605
  4. PREDNISOLONE [Suspect]
     Active Substance: PREDNISOLONE
     Dosage: 35 MILLIGRAM, QD (PERORAL MEDICINE)
     Route: 048
     Dates: start: 20230606, end: 20230705
  5. PREDNISOLONE [Suspect]
     Active Substance: PREDNISOLONE
     Dosage: 30 MILLIGRAM, QD (PERORAL MEDICINE)
     Route: 048
     Dates: start: 20230706, end: 20230710
  6. PREDNISOLONE [Suspect]
     Active Substance: PREDNISOLONE
     Dosage: 25 MILLIGRAM, QD (PERORAL MEDICINE)
     Route: 048
     Dates: start: 20230711, end: 20230719
  7. PREDNISOLONE [Suspect]
     Active Substance: PREDNISOLONE
     Dosage: 20 MILLIGRAM, QD (PERORAL MEDICINE)
     Route: 048
     Dates: start: 20230720, end: 20230809
  8. PREDNISOLONE [Suspect]
     Active Substance: PREDNISOLONE
     Dosage: 15 MILLIGRAM, QD (PERORAL MEDICINE)
     Route: 048
     Dates: start: 20230810, end: 20231101
  9. PREDNISOLONE [Suspect]
     Active Substance: PREDNISOLONE
     Dosage: 10 MILLIGRAM, QD (PERORAL MEDICINE)
     Route: 048
     Dates: start: 20231102, end: 20231115
  10. PREDNISOLONE [Suspect]
     Active Substance: PREDNISOLONE
     Dosage: 7.5 MILLIGRAM, QD (PERORAL MEDICINE)
     Route: 048
     Dates: start: 20231116, end: 20231213
  11. PREDNISOLONE [Suspect]
     Active Substance: PREDNISOLONE
     Dosage: 5 MILLIGRAM, QD (PERORAL MEDICINE)
     Route: 048
     Dates: start: 20231214, end: 20240205
  12. PREDNISOLONE [Suspect]
     Active Substance: PREDNISOLONE
     Dosage: 4 MILLIGRAM, QD (PERORAL MEDICINE)
     Route: 048
     Dates: start: 20240206, end: 20240410
  13. PREDNISOLONE [Suspect]
     Active Substance: PREDNISOLONE
     Dosage: 3 MILLIGRAM, QD (PERORAL MEDICINE)
     Route: 048
     Dates: start: 20240411, end: 20240508
  14. PREDNISOLONE [Suspect]
     Active Substance: PREDNISOLONE
     Dosage: 2 MILLIGRAM, QD (PERORAL MEDICINE)
     Route: 048
     Dates: start: 20240509, end: 20240605
  15. PREDNISOLONE [Suspect]
     Active Substance: PREDNISOLONE
     Dosage: 1 MILLIGRAM, QD (PERORAL MEDICINE)
     Route: 048
     Dates: start: 20240606
  16. RITUXIMAB [Concomitant]
     Active Substance: RITUXIMAB
     Indication: Microscopic polyangiitis
     Dosage: UNK
     Route: 040
  17. RITUXIMAB [Concomitant]
     Active Substance: RITUXIMAB
     Dosage: 640 MILLIGRAM
     Route: 040
     Dates: start: 20231115, end: 20231115
  18. SULFAMETHOXAZOLE\TRIMETHOPRIM [Concomitant]
     Active Substance: SULFAMETHOXAZOLE\TRIMETHOPRIM
     Indication: Antifungal prophylaxis
     Dosage: 1500 MILLIGRAM, QWK (PERORAL MEDICINE)
     Route: 048

REACTIONS (1)
  - Spinal compression fracture [Recovering/Resolving]

NARRATIVE: CASE EVENT DATE: 20231226
